FAERS Safety Report 21559165 (Version 2)
Quarter: 2022Q4

REPORT INFORMATION
  Report Type: Report from Study
  Country: BD (occurrence: BD)
  Receive Date: 20221107
  Receipt Date: 20221109
  Transmission Date: 20230112
  Serious: Yes (Death, Hospitalization)
  Sender: FDA-Public Use
  Company Number: BD-002147023-NVSC2022BD249788

PATIENT
  Age: 33 Year
  Sex: Male
  Weight: 70 kg

DRUGS (2)
  1. SIMULECT [Suspect]
     Active Substance: BASILIXIMAB
     Indication: Renal transplant
     Dosage: 20 MG
     Route: 065
     Dates: start: 20220912
  2. SIMULECT [Suspect]
     Active Substance: BASILIXIMAB
     Dosage: 20 MG
     Route: 065
     Dates: start: 20220917

REACTIONS (1)
  - Cerebrovascular accident [Fatal]

NARRATIVE: CASE EVENT DATE: 20221026
